FAERS Safety Report 9564119 (Version 1)
Quarter: 2013Q3

REPORT INFORMATION
  Report Type: Spontaneous
  Country: US (occurrence: US)
  Receive Date: 20130929
  Receipt Date: 20130929
  Transmission Date: 20140515
  Serious: No
  Sender: FDA-Public Use
  Company Number: US-009507513-1309USA013928

PATIENT
  Sex: Female

DRUGS (3)
  1. ZEGERID OTC CAPSULES [Suspect]
     Indication: DYSPEPSIA
     Dosage: UNK, UNKNOWN
     Route: 048
  2. ZEGERID OTC CAPSULES [Suspect]
     Dosage: UNK
     Route: 048
  3. ZEGERID OTC CAPSULES [Suspect]
     Dosage: UNK
     Route: 048

REACTIONS (3)
  - Abdominal pain upper [Unknown]
  - Decreased appetite [Unknown]
  - Unevaluable event [Unknown]
